FAERS Safety Report 10754216 (Version 1)
Quarter: 2015Q1

REPORT INFORMATION
  Report Type: Spontaneous
  Country: FI (occurrence: FI)
  Receive Date: 20150202
  Receipt Date: 20150202
  Transmission Date: 20150721
  Serious: Yes (Life-Threatening)
  Sender: FDA-Public Use
  Company Number: FI-JNJFOC-20150113754

PATIENT
  Age: 56 Year
  Sex: Male

DRUGS (3)
  1. ZYTIGA [Suspect]
     Active Substance: ABIRATERONE ACETATE
     Indication: PROSTATE CANCER
     Route: 048
     Dates: start: 20121005, end: 20141215
  2. ENANTON [Concomitant]
     Indication: PROSTATE CANCER
     Route: 058
     Dates: start: 20140930, end: 20141215
  3. PREDNISOLON [Concomitant]
     Active Substance: PREDNISOLONE
     Dates: start: 20121005, end: 20141215

REACTIONS (3)
  - Blood pressure abnormal [Not Recovered/Not Resolved]
  - Endotoxic shock [Not Recovered/Not Resolved]
  - Loss of consciousness [Not Recovered/Not Resolved]

NARRATIVE: CASE EVENT DATE: 20141215
